FAERS Safety Report 6960100-9 (Version None)
Quarter: 2010Q3

REPORT INFORMATION
  Report Type: 
  Country: None (occurrence: None)
  Receive Date: 20100901
  Receipt Date: 20100820
  Transmission Date: 20110219
  Serious: Yes (Hospitalization, Other)
  Sender: FDA-Public Use
  Company Number: GB-ELI_LILLY_AND_COMPANY-GB201008006325

PATIENT
  Age: 37 Year
  Sex: Male

DRUGS (1)
  1. ZYPADHERA [Suspect]
     Dosage: 300 MG, UNKNOWN
     Route: 030
     Dates: start: 20100518

REACTIONS (2)
  - DEEP VEIN THROMBOSIS [None]
  - OEDEMA PERIPHERAL [None]
